FAERS Safety Report 4601717-6 (Version None)
Quarter: 2005Q1

REPORT INFORMATION
  Report Type: 
  Country: None (occurrence: None)
  Receive Date: 20050131
  Receipt Date: 20041222
  Transmission Date: 20050727
  Serious: No
  Sender: FDA-Public Use
  Company Number: 200419746US

PATIENT
  Age: 51 Year
  Sex: Female
  Weight: 70.4 kg

DRUGS (2)
  1. TELITHROMYCIN (KETEK) TABLETS [Suspect]
     Indication: SINUSITIS
     Dosage: 2 TABLETS 400MG QD PO
     Route: 048
     Dates: start: 20041221, end: 20041221
  2. CYCLOBENZAPRINE HYDROCHLORIDE (FLEXERIL) [Concomitant]

REACTIONS (2)
  - DIZZINESS [None]
  - VOMITING [None]
